FAERS Safety Report 7923559-6 (Version None)
Quarter: 2011Q4

REPORT INFORMATION
  Report Type: 
  Country: None (occurrence: None)
  Receive Date: 20111117
  Receipt Date: 20110204
  Transmission Date: 20120403
  Serious: No
  Sender: FDA-Public Use
  Company Number: US-AMGEN-USASP2011006864

PATIENT
  Age: 32 Year
  Sex: Female

DRUGS (1)
  1. ENBREL [Suspect]
     Indication: PROSTATIC SPECIFIC ANTIGEN
     Dates: start: 20101229

REACTIONS (6)
  - INJECTION SITE WARMTH [None]
  - INJECTION SITE INDURATION [None]
  - INJECTION SITE ERYTHEMA [None]
  - HEADACHE [None]
  - INJECTION SITE PRURITUS [None]
  - INJECTION SITE DISCOMFORT [None]
